FAERS Safety Report 7531756-7 (Version None)
Quarter: 2011Q2

REPORT INFORMATION
  Report Type: 
  Country: None (occurrence: None)
  Receive Date: 20110608
  Receipt Date: 20110530
  Transmission Date: 20111010
  Serious: Yes (Death, Other)
  Sender: FDA-Public Use
  Company Number: CA-ROCHE-746819

PATIENT
  Sex: Female
  Weight: 54 kg

DRUGS (9)
  1. BEVACIZUMAB [Suspect]
     Indication: GLIOBLASTOMA
     Dosage: DOSE; 10 MG/KG
     Route: 042
     Dates: start: 20101126, end: 20110113
  2. DECADRON [Concomitant]
     Route: 048
     Dates: start: 20100908
  3. DILANTIN [Concomitant]
     Route: 048
  4. ALENDRONIC ACID [Concomitant]
  5. INSULIN [Concomitant]
  6. ZOPICLONE [Concomitant]
  7. IMMOVANE [Concomitant]
  8. CLARITIN [Concomitant]
  9. KEPPRA [Concomitant]
     Route: 048
     Dates: start: 20100601

REACTIONS (3)
  - CEREBRAL HAEMORRHAGE [None]
  - DEEP VEIN THROMBOSIS [None]
  - DEATH [None]
